FAERS Safety Report 19139482 (Version 1)
Quarter: 2021Q2

REPORT INFORMATION
  Report Type: Spontaneous
  Country: US (occurrence: US)
  Receive Date: 20210415
  Receipt Date: 20210415
  Transmission Date: 20210717
  Serious: Yes (Hospitalization)
  Sender: FDA-Public Use
  Company Number: US-MYLANLABS-2021M1022460

PATIENT
  Age: 7 Month
  Sex: Female

DRUGS (9)
  1. DAUNORUBICIN [Suspect]
     Active Substance: DAUNORUBICIN
     Indication: ACUTE LEUKAEMIA
     Dosage: 30 MILLIGRAM/SQ. METER AS A PART OF INTERFANT?06..
     Route: 042
  2. CYTARABINE. [Suspect]
     Active Substance: CYTARABINE
     Indication: ACUTE LEUKAEMIA
     Dosage: 100 MILLIGRAM/SQ. METER, BID DAY 1 TO DAY 10
     Route: 065
  3. VINCRISTINE [Suspect]
     Active Substance: VINCRISTINE
     Indication: ACUTE LEUKAEMIA
     Dosage: 1.5 MILLIGRAM/SQ. METER AS A PART OF INTERFANT?06...
     Route: 042
  4. CYTARABINE. [Suspect]
     Active Substance: CYTARABINE
     Indication: ACUTE LEUKAEMIA
     Dosage: 75 MILLIGRAM/SQ. METER AS A PART OF INTERFANT..
     Route: 042
  5. L?ASPARAGINASE [Suspect]
     Active Substance: ASPARAGINASE
     Indication: ACUTE LEUKAEMIA
     Dosage: AS A PART OF INTERFANT?06 PROTOCOL; ASPARAGINASE 10000 U/M2/DOSE FOR 1 HOUR
     Route: 042
  6. PREDNISONE. [Suspect]
     Active Substance: PREDNISONE
     Indication: ACUTE LEUKAEMIA
     Dosage: 60 MILLIGRAM/SQ. METER, QD AS A PART OF..
     Route: 065
  7. DAUNORUBICIN [Suspect]
     Active Substance: DAUNORUBICIN
     Indication: ACUTE LEUKAEMIA
     Dosage: 50 MILLIGRAM/SQ. METER ON DAY 1, DAY 3 AND DAY 5
     Route: 065
  8. ETOPOSIDE. [Suspect]
     Active Substance: ETOPOSIDE
     Indication: ACUTE LEUKAEMIA
     Dosage: 100 MILLIGRAM/SQ. METER DAY 1 TO DAY 5
     Route: 065
  9. DEXAMETHASONE. [Suspect]
     Active Substance: DEXAMETHASONE
     Indication: ACUTE LEUKAEMIA
     Dosage: 6 MILLIGRAM/SQ. METER, QD AS A PART OF INTERFANT..
     Route: 065

REACTIONS (2)
  - Febrile neutropenia [Unknown]
  - Streptococcal sepsis [Unknown]
